FAERS Safety Report 8307228-9 (Version None)
Quarter: 2012Q1

REPORT INFORMATION
  Report Type: 
  Country: None (occurrence: None)
  Receive Date: 20120327
  Receipt Date: 20090702
  Transmission Date: 20120608
  Serious: Yes (Hospitalization)
  Sender: FDA-Public Use
  Company Number: PHEH2009US07073

PATIENT
  Age: 43 Year
  Sex: Female

DRUGS (3)
  1. ATENOLOL [Concomitant]
  2. HYDROCHLOROTHIAZIDE [Suspect]
  3. GLEEVEC [Suspect]
     Indication: GASTRIC CANCER
     Dosage: 400 MG, QD, ORAL
     Route: 048
     Dates: start: 20081119

REACTIONS (2)
  - URINARY TRACT INFECTION [None]
  - URINE OUTPUT DECREASED [None]
